APPROVED DRUG PRODUCT: MORPHINE SULFATE
Active Ingredient: MORPHINE SULFATE
Strength: 50MG/ML
Dosage Form/Route: INJECTABLE;INJECTION
Application: N202515 | Product #006
Applicant: HOSPIRA INC
Approved: Apr 29, 2021 | RLD: Yes | RS: Yes | Type: RX